FAERS Safety Report 25134504 (Version 1)
Quarter: 2025Q1

REPORT INFORMATION
  Report Type: Report from Study
  Country: GB (occurrence: GB)
  Receive Date: 20250328
  Receipt Date: 20250328
  Transmission Date: 20250409
  Serious: Yes (Hospitalization)
  Sender: EISAI
  Company Number: GB-Eisai-EC-2025-186413

PATIENT
  Sex: Female
  Weight: 66.1 kg

DRUGS (7)
  1. LENVATINIB [Suspect]
     Active Substance: LENVATINIB
     Indication: Neuroendocrine tumour
     Dosage: STARTING DOSE UNKNOWN; PRIOR TO THE EVENT DOSE REDUCED TO 14 MG ONCE A DAY
     Dates: end: 20250314
  2. PEMBROLIZUMAB [Suspect]
     Active Substance: PEMBROLIZUMAB
     Indication: Neuroendocrine tumour
  3. PREDNISOLONE [Concomitant]
     Active Substance: PREDNISOLONE
  4. NITROFURANTOIN [Concomitant]
     Active Substance: NITROFURANTOIN
     Dates: start: 20250108, end: 20250111
  5. MORPHINE SULFATE [Concomitant]
     Active Substance: MORPHINE SULFATE
  6. OMEPRAZOLE [Concomitant]
     Active Substance: OMEPRAZOLE
  7. CEFACLOR [Concomitant]
     Active Substance: CEFACLOR
     Dates: start: 20250130, end: 20250206

REACTIONS (1)
  - Vomiting [Not Recovered/Not Resolved]

NARRATIVE: CASE EVENT DATE: 20250316
